FAERS Safety Report 7231751-1 (Version None)
Quarter: 2011Q1

REPORT INFORMATION
  Report Type: 
  Country: None (occurrence: None)
  Receive Date: 20110107
  Receipt Date: 20101222
  Transmission Date: 20110831
  Serious: Yes (Disabling, Other)
  Sender: FDA-Public Use
  Company Number: 2010005570

PATIENT
  Age: 62 Year
  Sex: Female

DRUGS (2)
  1. ENOXAPARIN [Concomitant]
  2. TARCEVA [Suspect]
     Indication: NON-SMALL CELL LUNG CANCER
     Dosage: (150 MG, QD), ORAL
     Route: 048
     Dates: start: 20100728

REACTIONS (2)
  - DIARRHOEA [None]
  - BLINDNESS [None]
